FAERS Safety Report 12138403 (Version 2)
Quarter: 2016Q1

REPORT INFORMATION
  Report Type: Spontaneous
  Country: FR (occurrence: FR)
  Receive Date: 20160302
  Receipt Date: 20160328
  Transmission Date: 20160526
  Serious: Yes (Other)
  Sender: FDA-Public Use
  Company Number: FR-MYLANLABS-2016M1009217

PATIENT

DRUGS (12)
  1. SODIUM VALPROATE [Concomitant]
     Active Substance: VALPROATE SODIUM
     Dosage: 1400 MG, QD
     Route: 065
  2. PARACETAMOL [Concomitant]
     Active Substance: ACETAMINOPHEN
     Dosage: 3000 MG, QD
  3. CLOMIPRAMINE [Concomitant]
     Active Substance: CLOMIPRAMINE
     Dosage: 75 MG, QD
  4. CEFTRIAXONE. [Concomitant]
     Active Substance: CEFTRIAXONE
     Dosage: 1 G, QD
     Route: 065
  5. OFLOXACIN. [Concomitant]
     Active Substance: OFLOXACIN
     Dosage: 200 MG, QD
     Route: 065
  6. SALMETEROL [Concomitant]
     Active Substance: SALMETEROL
     Dosage: 50 ?G, QD
     Route: 065
  7. METHOTREXATE [Suspect]
     Active Substance: METHOTREXATE
     Indication: RHEUMATOID ARTHRITIS
     Dosage: 25 MG PER WEEK ON EVERY TUESDAY
     Route: 042
  8. PEG 3350 [Concomitant]
     Active Substance: POLYETHYLENE GLYCOL 3350
  9. LETROZOLE. [Concomitant]
     Active Substance: LETROZOLE
     Dosage: 2.5 MG, QD
  10. LEVOTHYROXINE SODIUM. [Concomitant]
     Active Substance: LEVOTHYROXINE SODIUM
     Dosage: 10 ?G, QD
  11. MORPHINE [Concomitant]
     Active Substance: MORPHINE
     Indication: PAIN
     Dosage: 20 MG, QD UPON REQUEST
     Route: 065
  12. AMOXICILLIN AND CLAVULANATE POTASSIUM [Concomitant]
     Active Substance: AMOXICILLIN\CLAVULANATE POTASSIUM
     Dosage: 3 G, QD
     Route: 065

REACTIONS (4)
  - Acute kidney injury [Not Recovered/Not Resolved]
  - Henoch-Schonlein purpura [Unknown]
  - Hypoxia [Unknown]
  - Acute respiratory failure [Unknown]
